FAERS Safety Report 8031372-7 (Version None)
Quarter: 2011Q4

REPORT INFORMATION
  Report Type: 
  Country: None (occurrence: None)
  Receive Date: 20111201
  Receipt Date: 20110923
  Transmission Date: 20120403
  Serious: Yes (Other)
  Sender: FDA-Public Use
  Company Number: 2011SP036591

PATIENT
  Age: 35 Year
  Sex: Female

DRUGS (2)
  1. PREGNYL [Suspect]
     Indication: OVULATION INDUCTION
     Dosage: 10000 IU;ONCE;IM
     Route: 030
     Dates: start: 20110730, end: 20110730
  2. DOXYCYCLINE [Concomitant]

REACTIONS (1)
  - THERAPEUTIC RESPONSE DECREASED [None]
